FAERS Safety Report 17034309 (Version 2)
Quarter: 2019Q4

REPORT INFORMATION
  Report Type: Spontaneous
  Country: US (occurrence: US)
  Receive Date: 20191115
  Receipt Date: 20191206
  Transmission Date: 20200122
  Serious: Yes (Hospitalization, Other)
  Sender: FDA-Public Use
  Company Number: US-AUROBINDO-AUR-APL-2019-071700

PATIENT
  Age: 49 Year
  Sex: Male

DRUGS (3)
  1. TRAMADOL. [Suspect]
     Active Substance: TRAMADOL
     Indication: PAIN MANAGEMENT
     Dosage: 50 MILLIGRAM, DAILY
     Route: 065
  2. TRAMADOL. [Interacting]
     Active Substance: TRAMADOL
     Indication: OSTEOARTHRITIS
     Dosage: 150 MILLIGRAM, DAILY, SELF INCREASED DOSE
     Route: 065
  3. VENLAFAXINE [Interacting]
     Active Substance: VENLAFAXINE HYDROCHLORIDE
     Indication: MAJOR DEPRESSION
     Dosage: 75 MILLIGRAM, DAILY
     Route: 065

REACTIONS (14)
  - Mania [Recovered/Resolved]
  - Drug interaction [Unknown]
  - Drug ineffective [Unknown]
  - Atrial fibrillation [Unknown]
  - Delusion of grandeur [Recovered/Resolved]
  - Withdrawal syndrome [Recovered/Resolved]
  - Drug screen positive [Unknown]
  - Abnormal behaviour [Recovered/Resolved]
  - Tachycardia [Recovered/Resolved]
  - Pressure of speech [Recovered/Resolved]
  - Confusional state [Recovered/Resolved]
  - Insomnia [Recovered/Resolved]
  - Intentional product use issue [Unknown]
  - Agitation [Recovered/Resolved]
